FAERS Safety Report 7645561-4 (Version None)
Quarter: 2011Q3

REPORT INFORMATION
  Report Type: 
  Country: None (occurrence: None)
  Receive Date: 20110729
  Receipt Date: 20110722
  Transmission Date: 20111222
  Serious: Yes (Other)
  Sender: FDA-Public Use
  Company Number: CO-ROCHE-791793

PATIENT
  Sex: Female

DRUGS (3)
  1. ACTEMRA [Suspect]
     Indication: RHEUMATOID ARTHRITIS
     Dosage: FREQ: EVERY 28 DAYS.
     Route: 042
     Dates: start: 20100511
  2. TRAMADOL HCL [Concomitant]
     Indication: PAIN
     Dosage: FREQ: PRN
     Route: 048
  3. DICLOFENAC SODIUM [Concomitant]
     Indication: PAIN
     Dosage: FREQ: PRN
     Route: 048

REACTIONS (1)
  - METAPLASIA [None]
